FAERS Safety Report 23425417 (Version 1)
Quarter: 2024Q1

REPORT INFORMATION
  Report Type: Spontaneous
  Country: US (occurrence: US)
  Receive Date: 20240122
  Receipt Date: 20240122
  Transmission Date: 20240410
  Serious: No
  Sender: FDA-Public Use
  Company Number: US-ELI_LILLY_AND_COMPANY-US202401008954

PATIENT
  Sex: Female

DRUGS (4)
  1. TALTZ [Suspect]
     Active Substance: IXEKIZUMAB
     Indication: Product used for unknown indication
     Dosage: UNK UNK, UNKNOWN
     Route: 065
  2. TALTZ [Suspect]
     Active Substance: IXEKIZUMAB
     Indication: Product used for unknown indication
     Dosage: UNK UNK, UNKNOWN
     Route: 065
  3. TALTZ [Suspect]
     Active Substance: IXEKIZUMAB
     Dosage: UNK UNK, OTHER (EVERY OTHER MONTH)
     Route: 065
  4. TALTZ [Suspect]
     Active Substance: IXEKIZUMAB
     Dosage: UNK UNK, OTHER (EVERY OTHER MONTH)
     Route: 065

REACTIONS (4)
  - Incorrect dose administered [Unknown]
  - Inappropriate schedule of product administration [Unknown]
  - Fat tissue increased [Unknown]
  - Injection site pain [Unknown]

NARRATIVE: CASE EVENT DATE: 20240115
